FAERS Safety Report 24256047 (Version 2)
Quarter: 2024Q3

REPORT INFORMATION
  Report Type: Spontaneous
  Country: US (occurrence: US)
  Receive Date: 20240827
  Receipt Date: 20240827
  Transmission Date: 20241017
  Serious: No
  Sender: SANDOZ
  Company Number: US-SANDOZ-SDZ2024US075060

PATIENT
  Sex: Female

DRUGS (1)
  1. ALBUTEROL SULFATE [Suspect]
     Active Substance: ALBUTEROL SULFATE
     Indication: Asthma
     Dosage: TWO PUFFS EACH TIME SHE USES, BID
     Route: 055

REACTIONS (3)
  - Asthma [Unknown]
  - Product dose omission issue [Unknown]
  - Device issue [Unknown]
